FAERS Safety Report 17307645 (Version 1)
Quarter: 2020Q1

REPORT INFORMATION
  Report Type: Report from Study
  Country: AT (occurrence: AT)
  Receive Date: 20200123
  Receipt Date: 20200123
  Transmission Date: 20200409
  Serious: Yes (Other)
  Sender: FDA-Public Use
  Company Number: AT-ROCHE-2525486

PATIENT
  Age: 4 Year
  Sex: Male

DRUGS (1)
  1. ENTRECTINIB [Suspect]
     Active Substance: ENTRECTINIB
     Indication: MALIGNANT GLIOMA
     Route: 065
     Dates: start: 20190629

REACTIONS (2)
  - Urinary tract infection [Unknown]
  - Aspiration [Unknown]

NARRATIVE: CASE EVENT DATE: 20191127
